FAERS Safety Report 11804697 (Version 2)
Quarter: 2015Q4

REPORT INFORMATION
  Report Type: Report from Study
  Country: US (occurrence: US)
  Receive Date: 20151205
  Receipt Date: 20151215
  Transmission Date: 20160305
  Serious: Yes (Other)
  Sender: FDA-Public Use
  Company Number: US-ASTRAZENECA-2013SE62067

PATIENT
  Age: 56 Year
  Sex: Female
  Weight: 62.6 kg

DRUGS (6)
  1. ACETAMINOPHEN-CODIENE [Concomitant]
     Indication: PAIN
     Dosage: 300-30 MG, AS REQUIRED
     Dates: start: 20151012
  2. ALEVE [Concomitant]
     Active Substance: NAPROXEN SODIUM
     Indication: PAIN
     Dosage: 2 DAILY AS NEEDED
  3. ALPRAZOLAM. [Concomitant]
     Active Substance: ALPRAZOLAM
     Indication: ANXIETY
     Dates: start: 2008
  4. NEXIUM [Suspect]
     Active Substance: ESOMEPRAZOLE MAGNESIUM
     Indication: GASTROOESOPHAGEAL REFLUX DISEASE
     Route: 048
  5. NEXIUM [Suspect]
     Active Substance: ESOMEPRAZOLE MAGNESIUM
     Indication: GASTROOESOPHAGEAL REFLUX DISEASE
     Dosage: GENERIC
     Route: 065
  6. TRAMADOL. [Concomitant]
     Active Substance: TRAMADOL
     Indication: PAIN
     Dates: start: 2012

REACTIONS (10)
  - Back disorder [Unknown]
  - Rib fracture [Unknown]
  - Skin discolouration [Unknown]
  - Weight increased [Unknown]
  - Intentional product misuse [Unknown]
  - Wrist fracture [Unknown]
  - Upper limb fracture [Unknown]
  - Dyspepsia [Unknown]
  - Nerve injury [Unknown]
  - Contusion [Unknown]

NARRATIVE: CASE EVENT DATE: 2014
